FAERS Safety Report 24931640 (Version 1)
Quarter: 2025Q1

REPORT INFORMATION
  Report Type: Spontaneous
  Country: ES (occurrence: ES)
  Receive Date: 20250205
  Receipt Date: 20250205
  Transmission Date: 20250409
  Serious: Yes (Life-Threatening)
  Sender: UCB
  Company Number: None

PATIENT
  Age: 22 Year
  Sex: Male
  Weight: 51 kg

DRUGS (2)
  1. VIMPAT [Suspect]
     Active Substance: LACOSAMIDE
     Indication: Epilepsy
     Route: 048
     Dates: start: 20250129
  2. LEVOTHYROXINE SODIUM [Concomitant]
     Active Substance: LEVOTHYROXINE SODIUM
     Indication: Hypothyroidism
     Route: 048
     Dates: start: 20240416

REACTIONS (5)
  - Confusional state [Recovering/Resolving]
  - Disorientation [Recovering/Resolving]
  - Hallucinations, mixed [Recovering/Resolving]
  - Suicide attempt [Recovering/Resolving]
  - Acute psychosis [Recovering/Resolving]

NARRATIVE: CASE EVENT DATE: 20250130
